FAERS Safety Report 10044779 (Version 1)
Quarter: 2014Q1

REPORT INFORMATION
  Report Type: Spontaneous
  Country: CA (occurrence: None)
  Receive Date: 20140326
  Receipt Date: 20140326
  Transmission Date: 20141002
  Serious: Yes (Hospitalization)
  Sender: FDA-Public Use
  Company Number: 2014AP002148

PATIENT
  Age: 14 Year
  Sex: Female

DRUGS (3)
  1. VALPROIC ACID (VALPROIC ACID) [Suspect]
     Dosage: UNKNOWN  THERAPY DATES UNKNOWN
  2. CEPHALEXIN (CEFALEXIN) [Concomitant]
  3. PHENYTOIN (PHENYTOIN) [Concomitant]

REACTIONS (1)
  - Drug reaction with eosinophilia and systemic symptoms [None]
